FAERS Safety Report 13892306 (Version 1)
Quarter: 2017Q3

REPORT INFORMATION
  Report Type: Spontaneous
  Country: GB (occurrence: GB)
  Receive Date: 20170822
  Receipt Date: 20170822
  Transmission Date: 20171127
  Serious: Yes (Other)
  Sender: FDA-Public Use
  Company Number: GB-PFIZER INC-2017360172

PATIENT
  Age: 73 Year
  Sex: Female
  Weight: 64 kg

DRUGS (4)
  1. AVAMYS [Concomitant]
     Active Substance: FLUTICASONE FUROATE
     Dosage: 1 DF, 1X/DAY
     Dates: start: 20130731
  2. LANSOPRAZOLE. [Concomitant]
     Active Substance: LANSOPRAZOLE
     Dosage: 1 DF, AS NEEDED (DAILY OR AS REQUIRED)
     Dates: start: 20091026
  3. CIPROFLOXACIN. [Concomitant]
     Active Substance: CIPROFLOXACIN
     Dosage: 1 DF, 2X/DAY (SPACED 12 HOURLY.)
     Dates: start: 20170602, end: 20170603
  4. IBUPROFEN. [Suspect]
     Active Substance: IBUPROFEN
     Dosage: UNK
     Dates: start: 20170808

REACTIONS (4)
  - Swelling [Recovered/Resolved]
  - Urticaria [Unknown]
  - Skin exfoliation [Unknown]
  - Swelling face [Unknown]

NARRATIVE: CASE EVENT DATE: 20170808
